FAERS Safety Report 10750463 (Version 1)
Quarter: 2015Q1

REPORT INFORMATION
  Report Type: Report from Study
  Country: CN (occurrence: CN)
  Receive Date: 20150130
  Receipt Date: 20150130
  Transmission Date: 20150721
  Serious: Yes (Hospitalization)
  Sender: FDA-Public Use
  Company Number: CN-ROCHE-1459330

PATIENT
  Age: 55 Year
  Sex: Male
  Weight: 52 kg

DRUGS (51)
  1. LANSOPRAZOLE. [Concomitant]
     Active Substance: LANSOPRAZOLE
     Indication: PROPHYLAXIS
     Route: 042
     Dates: start: 20140926, end: 20140929
  2. ESTAZOLAM. [Concomitant]
     Active Substance: ESTAZOLAM
     Indication: ANXIETY
     Route: 048
     Dates: start: 20140904, end: 20140904
  3. POTASSIUM CHLORIDE. [Concomitant]
     Active Substance: POTASSIUM CHLORIDE
     Indication: BLOOD ELECTROLYTES
     Route: 042
     Dates: start: 20140905, end: 20140905
  4. LYSINE ASPIRIN [Concomitant]
     Active Substance: ASPIRIN DL-LYSINE
     Indication: PYREXIA
     Route: 042
     Dates: start: 20140905, end: 20140905
  5. TORSEMIDE. [Concomitant]
     Active Substance: TORSEMIDE
     Indication: POLYURIA
     Route: 042
     Dates: start: 20140905, end: 20140905
  6. MOXIFLOXACIN [Concomitant]
     Active Substance: MOXIFLOXACIN
     Indication: INFECTION
     Route: 042
     Dates: start: 20140905, end: 20140905
  7. ADEMETIONINE [Concomitant]
     Active Substance: ADEMETIONINE
     Dosage: INDICATION: LIVER PROTECTION
     Route: 048
     Dates: start: 20140916, end: 20140920
  8. PLACEBO [Suspect]
     Active Substance: UNSPECIFIED INGREDIENT
     Indication: HER-2 POSITIVE GASTRIC CANCER
     Dosage: LOADING DOSE?LAST DOSE PRIOR TO EVENT ON 04/SEP/2014
     Route: 042
     Dates: start: 20141204
  9. TRASTUZUMAB [Suspect]
     Active Substance: TRASTUZUMAB
     Indication: HER-2 POSITIVE GASTRIC CANCER
     Dosage: LOADING DOSE, LAST DOSE (416 MG) PRIOR TO EVENT ON 04/SEP/2014
     Route: 042
     Dates: start: 20140904
  10. VITAMIN B6 [Concomitant]
     Active Substance: PYRIDOXINE HYDROCHLORIDE
     Dosage: INDICATION - VITAMIN B6 SUPPLEMENTS
     Route: 042
     Dates: start: 20141017, end: 20141020
  11. POTASSIUM CHLORIDE. [Concomitant]
     Active Substance: POTASSIUM CHLORIDE
     Indication: BLOOD ELECTROLYTES
     Dosage: INDICATION: POTASSIUM SUPPLEMENT
     Route: 042
     Dates: start: 20140905, end: 20140905
  12. INSULIN [Concomitant]
     Active Substance: INSULIN NOS
     Dosage: DOSE: 400 U
     Route: 042
     Dates: start: 20140926, end: 20140926
  13. RIBOFLAVIN SODIUM PHOSPHATE [Concomitant]
     Dosage: INDICATION: ANTI-INFLAMATORY.
     Route: 042
     Dates: start: 20141017, end: 20141020
  14. MOXIFLOXACIN HYDROCHLORIDE. [Concomitant]
     Active Substance: MOXIFLOXACIN HYDROCHLORIDE
     Indication: INFECTION PROPHYLAXIS
     Route: 042
     Dates: start: 20140905, end: 20140912
  15. LANSOPRAZOLE. [Concomitant]
     Active Substance: LANSOPRAZOLE
     Indication: DYSPEPSIA
     Dosage: INDICATION: GASTRIC MUCOSA
     Route: 042
     Dates: start: 20140820, end: 20140820
  16. POTASSIUM CHLORIDE. [Concomitant]
     Active Substance: POTASSIUM CHLORIDE
     Route: 042
     Dates: start: 20140906, end: 20140906
  17. POTASSIUM CHLORIDE. [Concomitant]
     Active Substance: POTASSIUM CHLORIDE
     Dosage: POTASSIUM SUPPLEMENTS
     Route: 042
     Dates: start: 20140927, end: 20140927
  18. POTASSIUM CHLORIDE. [Concomitant]
     Active Substance: POTASSIUM CHLORIDE
     Dosage: POTASSIUM SUPPLEMENTS
     Route: 042
     Dates: start: 20141017, end: 20141017
  19. SODIUM CHLORIDE. [Concomitant]
     Active Substance: SODIUM CHLORIDE
     Indication: BLOOD ELECTROLYTES
     Route: 042
     Dates: start: 20140905, end: 20140905
  20. INDOMETHACIN. [Concomitant]
     Active Substance: INDOMETHACIN
     Indication: PYREXIA
     Route: 054
     Dates: start: 20140905, end: 20140905
  21. MOXIFLOXACIN [Concomitant]
     Active Substance: MOXIFLOXACIN
     Indication: INFECTION
     Route: 042
     Dates: start: 20140906, end: 20140906
  22. MOXIFLOXACIN [Concomitant]
     Active Substance: MOXIFLOXACIN
     Indication: INFECTION
     Route: 042
     Dates: start: 20140910, end: 20140910
  23. DOLASETRON MESYLATE [Concomitant]
     Active Substance: DOLASETRON MESYLATE
     Indication: PROPHYLAXIS OF NAUSEA AND VOMITING
     Route: 042
     Dates: start: 20140904
  24. CAPECITABINE. [Suspect]
     Active Substance: CAPECITABINE
     Indication: HER-2 POSITIVE GASTRIC CANCER
     Dosage: MOST RECENT DOSE PRIOR TO THE EVENT WAS RECEIVED ON 05/SEP/2014
     Route: 048
     Dates: start: 20140904
  25. LANSOPRAZOLE. [Concomitant]
     Active Substance: LANSOPRAZOLE
     Route: 042
     Dates: start: 20141017, end: 20141020
  26. SUCRALFATE. [Concomitant]
     Active Substance: SUCRALFATE
     Dosage: INDICATION: PROTECT THE GASTRIC MUCOSA
     Route: 048
     Dates: start: 20140820, end: 20140820
  27. INSULIN [Concomitant]
     Active Substance: INSULIN NOS
     Dosage: DOSE: 400 U?INDICATION: PROMOTING ABSORPTION OF GLUCOSE.
     Route: 042
     Dates: start: 20141017, end: 20141017
  28. LYSINE ASPIRIN [Concomitant]
     Active Substance: ASPIRIN DL-LYSINE
     Indication: PYREXIA
     Route: 042
     Dates: start: 20140905, end: 20140905
  29. LACTULOSE. [Concomitant]
     Active Substance: LACTULOSE
     Indication: CONSTIPATION
     Route: 048
     Dates: start: 20140907, end: 20140907
  30. HEPARIN SODIUM. [Concomitant]
     Active Substance: HEPARIN SODIUM
     Dosage: INDICATION: PREVENT BLOOD CLOTS
     Route: 042
     Dates: start: 20140826, end: 20140916
  31. VITAMIN C [Concomitant]
     Active Substance: ASCORBIC ACID
     Dosage: INDICATION- PREVENT VITAMIN C DEFICIENCY
     Route: 042
     Dates: start: 20140926, end: 20140926
  32. VITAMIN B6 [Concomitant]
     Active Substance: PYRIDOXINE HYDROCHLORIDE
     Dosage: INDICATION - PREVENT VITAMIN B6 DEFICIENCY
     Route: 042
     Dates: start: 20140926, end: 20140926
  33. POTASSIUM CHLORIDE. [Concomitant]
     Active Substance: POTASSIUM CHLORIDE
     Dosage: PREVENT HYPOKALEMIA
     Route: 042
     Dates: start: 20140926, end: 20140926
  34. INSULIN [Concomitant]
     Active Substance: INSULIN NOS
     Dosage: DOSE: 12 U??INDICATION: PROMOTE GLUCOSE UTILIZATION
     Route: 042
     Dates: start: 20140905, end: 20140905
  35. INSULIN [Concomitant]
     Active Substance: INSULIN NOS
     Dosage: DOSE: 400 U??INDICATION: PROMOTE GLUCOSE UTILIZATION
     Route: 042
     Dates: start: 20140905, end: 20140905
  36. INSULIN [Concomitant]
     Active Substance: INSULIN NOS
     Dosage: DOSE: 400 U?INDICATION: PROMOTING ABSORPTION OF GLUCOSE.
     Route: 042
     Dates: start: 20141017, end: 20141020
  37. METOCLOPRAMIDE DIHYDROCHLORIDE [Concomitant]
     Dosage: INDICATION: ANTI-NAUSEA
     Route: 030
     Dates: start: 20140926, end: 20140926
  38. NIFEDIPIN [Concomitant]
     Active Substance: NIFEDIPINE
     Indication: HYPERTENSION
     Route: 060
     Dates: start: 20140904, end: 20140904
  39. VITAMIN C [Concomitant]
     Active Substance: ASCORBIC ACID
     Dosage: INDICATION: VITAMIN C SUPPLEMENTS
     Route: 042
     Dates: start: 20140927, end: 20140927
  40. VITAMIN B6 [Concomitant]
     Active Substance: PYRIDOXINE HYDROCHLORIDE
     Indication: BLOOD ELECTROLYTES
     Route: 042
     Dates: start: 20140905, end: 20140905
  41. RIBOFLAVIN SODIUM PHOSPHATE [Concomitant]
     Route: 042
     Dates: start: 20140926, end: 20140929
  42. VITAMIN B6 [Concomitant]
     Active Substance: PYRIDOXINE HYDROCHLORIDE
     Dosage: INDICATION - VITAMIN B6 SUPPLEMENTS
     Route: 042
     Dates: start: 20140927, end: 20140927
  43. TORSEMIDE. [Concomitant]
     Active Substance: TORSEMIDE
     Indication: SECONDARY HYPERTENSION
     Route: 042
     Dates: start: 20140926, end: 20140926
  44. GLUCOSE [Concomitant]
     Active Substance: DEXTROSE
     Dosage: INDICATION: REPLENISH ENERGY AND BODY FLUID
     Route: 042
     Dates: start: 20140905, end: 20140907
  45. CISPLATIN. [Suspect]
     Active Substance: CISPLATIN
     Indication: HER-2 POSITIVE GASTRIC CANCER
     Dosage: LAST DOSE PRIOR TO EVENT ON 04/SEP/2014
     Route: 042
     Dates: start: 20140904
  46. LANSOPRAZOLE. [Concomitant]
     Active Substance: LANSOPRAZOLE
     Indication: DYSPEPSIA
     Route: 042
     Dates: start: 20140910, end: 20140910
  47. VITAMIN C [Concomitant]
     Active Substance: ASCORBIC ACID
     Indication: BLOOD ELECTROLYTES
     Route: 042
     Dates: start: 20140905, end: 20140905
  48. POTASSIUM CHLORIDE. [Concomitant]
     Active Substance: POTASSIUM CHLORIDE
     Dosage: POTASSIUM SUPPLEMENTS
     Route: 042
     Dates: start: 20141017, end: 20141020
  49. SODIUM CHLORIDE. [Concomitant]
     Active Substance: SODIUM CHLORIDE
     Indication: BLOOD ELECTROLYTES
     Route: 042
     Dates: start: 20140906, end: 20140907
  50. INSULIN [Concomitant]
     Active Substance: INSULIN NOS
     Dosage: DOSE: 6 U
     Route: 042
     Dates: start: 20140926, end: 20140927
  51. HUMAN ALBUMIN [Concomitant]
     Active Substance: ALBUMIN (HUMAN)
     Indication: INFECTION
     Route: 042
     Dates: start: 20140906, end: 20140909

REACTIONS (1)
  - Hepatic function abnormal [Recovered/Resolved]

NARRATIVE: CASE EVENT DATE: 20140905
